FAERS Safety Report 5107748-4 (Version None)
Quarter: 2006Q3

REPORT INFORMATION
  Report Type: 
  Country: None (occurrence: None)
  Receive Date: 20060914
  Receipt Date: 20060829
  Transmission Date: 20061208
  Serious: Yes (Other)
  Sender: FDA-Public Use
  Company Number: 430002N06JPN

PATIENT
  Age: 83 Year
  Sex: Female

DRUGS (13)
  1. NOVANTRONE [Suspect]
     Indication: ACUTE MYELOID LEUKAEMIA RECURRENT
     Dosage: INTRAVENOUS (NOT OTHERWISE SPECIFIED)
     Dates: start: 20060604, end: 20060608
  2. GEMTUZUMAB OZOGAMICIN [Suspect]
     Indication: ACUTE MYELOID LEUKAEMIA RECURRENT
     Dosage: INTRAVENOUS (NOT OTHERWISE SPECIFIED)
     Route: 042
     Dates: start: 20060511, end: 20060511
  3. CYTARABINE [Suspect]
     Indication: ACUTE MYELOID LEUKAEMIA RECURRENT
     Dosage: INTRAVENOUS (NOT OTHERWISE SPECIFIED)
     Route: 042
     Dates: start: 20060604, end: 20060608
  4. FLUDARABINE PHOSPHATE [Suspect]
     Indication: ACUTE MYELOID LEUKAEMIA RECURRENT
     Dosage: INTRAVENOUS (NOT OTHERWISE SPECIFIED)
     Route: 042
     Dates: start: 20060604, end: 20060608
  5. FLUCONAZOLE [Concomitant]
  6. AMPHOTERICIN B [Concomitant]
  7. LEVOFLOXACIN [Concomitant]
  8. ITRACONAZOLE [Concomitant]
  9. CEFTAZIDIME [Concomitant]
  10. CEFEPIME HYDROCHLORIDE [Concomitant]
  11. PRIMAXIN [Concomitant]
  12. LENOGRASTIM [Concomitant]
  13. GABEXATE MESILATE [Concomitant]

REACTIONS (2)
  - DISSEMINATED INTRAVASCULAR COAGULATION [None]
  - FEBRILE NEUTROPENIA [None]
